FAERS Safety Report 7666234-8 (Version None)
Quarter: 2011Q3

REPORT INFORMATION
  Report Type: 
  Country: None (occurrence: None)
  Receive Date: 20110806
  Receipt Date: 20110328
  Transmission Date: 20111222
  Serious: No
  Sender: FDA-Public Use
  Company Number: US-ABBOTT-11P-163-0714636-00

PATIENT
  Sex: Female
  Weight: 56.75 kg

DRUGS (5)
  1. NEXIUM [Concomitant]
     Indication: PRODUCT USED FOR UNKNOWN INDICATION
  2. NIASPAN [Suspect]
     Indication: LOW DENSITY LIPOPROTEIN INCREASED
     Dosage: AT BEDTIME
     Dates: start: 20110317
  3. NIASPAN [Suspect]
     Indication: BLOOD TRIGLYCERIDES
  4. UNKNOWN MEDICATION [Concomitant]
     Indication: HORMONE REPLACEMENT THERAPY
  5. ASPIRIN [Concomitant]
     Indication: PRODUCT USED FOR UNKNOWN INDICATION

REACTIONS (12)
  - URTICARIA [None]
  - JOINT SWELLING [None]
  - FATIGUE [None]
  - MYALGIA [None]
  - RASH MACULAR [None]
  - PRURITUS [None]
  - GAIT DISTURBANCE [None]
  - FLUSHING [None]
  - MUSCULAR WEAKNESS [None]
  - RASH [None]
  - PAIN [None]
  - ARTHRALGIA [None]
